FAERS Safety Report 24218718 (Version 1)
Quarter: 2024Q3

REPORT INFORMATION
  Report Type: Report from Study
  Country: CN (occurrence: None)
  Receive Date: 20240816
  Receipt Date: 20240816
  Transmission Date: 20241016
  Serious: Yes (Life-Threatening, Hospitalization)
  Sender: ASTRAZENECA
  Company Number: 2024A155835

PATIENT
  Age: 813 Month
  Sex: Male

DRUGS (6)
  1. OLAPARIB [Suspect]
     Active Substance: OLAPARIB
     Indication: Ovarian cancer
     Dates: start: 20240523, end: 20240615
  2. ABIRATERONE TABLET [Concomitant]
     Route: 048
     Dates: start: 20240523
  3. PREDNISONE ACETATE TABLET [Concomitant]
     Route: 048
     Dates: start: 20240523
  4. ETORICOXIB [Concomitant]
     Active Substance: ETORICOXIB
     Route: 048
     Dates: start: 20240607
  5. RECOMBINANT HUMAN THROMBOPOIETIN [Concomitant]
     Active Substance: RECOMBINANT HUMAN THROMBOPOIETIN
     Dates: start: 20240607, end: 20240607
  6. POLYSACC IRON COMPLEX [Concomitant]
     Active Substance: FERRIC POLYSACCHARIDE COMPLEX
     Dates: start: 20240607

REACTIONS (2)
  - Anaemia [Not Recovered/Not Resolved]
  - Aspartate aminotransferase increased [Not Recovered/Not Resolved]

NARRATIVE: CASE EVENT DATE: 20240615
